FAERS Safety Report 5509291-7 (Version None)
Quarter: 2007Q4

REPORT INFORMATION
  Report Type: 
  Country: None (occurrence: None)
  Receive Date: 20071107
  Receipt Date: 20071029
  Transmission Date: 20080405
  Serious: Yes (Other)
  Sender: FDA-Public Use
  Company Number: US-ABBOTT-07P-163-0422695-01

PATIENT
  Sex: Female
  Weight: 69 kg

DRUGS (21)
  1. HUMIRA [Suspect]
     Indication: RHEUMATOID ARTHRITIS
     Route: 058
     Dates: start: 20010206
  2. METHOTREXATE [Concomitant]
     Indication: RHEUMATOID ARTHRITIS
     Route: 048
     Dates: start: 20000321, end: 20070925
  3. OXAPROZIN [Concomitant]
     Indication: RHEUMATOID ARTHRITIS
     Route: 048
     Dates: start: 20031111
  4. PREDNISONE [Concomitant]
     Indication: RHEUMATOID ARTHRITIS
     Route: 048
     Dates: start: 20040324
  5. FOLIC ACID [Concomitant]
     Indication: VITAMIN SUPPLEMENTATION
     Route: 048
     Dates: start: 19980916
  6. VASERETIC [Concomitant]
     Indication: HYPERTENSION
     Dosage: 10/25 MG
     Route: 048
     Dates: start: 19950101
  7. AMITRIPTYLINE HCL [Concomitant]
     Indication: SLEEP DISORDER
     Dates: start: 19990730
  8. ALENDRONATE SODIUM [Concomitant]
     Indication: OSTEOPOROSIS
     Dates: start: 20020507, end: 20061211
  9. MULTI-VITAMIN [Concomitant]
     Indication: VITAMIN SUPPLEMENTATION
     Route: 048
     Dates: start: 20000201
  10. IRON [Concomitant]
     Indication: MINERAL SUPPLEMENTATION
     Route: 048
     Dates: start: 20000201
  11. CLORAZEPATE DIPOTASSIUM [Concomitant]
     Indication: DEPRESSION
     Route: 048
     Dates: start: 20010116
  12. POTASSIUM CHLORIDE [Concomitant]
     Indication: MINERAL SUPPLEMENTATION
     Route: 048
     Dates: start: 20010601
  13. IBUPROFEN [Concomitant]
     Indication: BURSITIS
     Route: 048
     Dates: start: 20030210, end: 20070530
  14. SERETIDE [Concomitant]
     Indication: DYSPNOEA EXERTIONAL
     Route: 055
     Dates: start: 20030923
  15. SIMVASTATIN [Concomitant]
     Indication: HYPERLIPIDAEMIA
     Route: 048
     Dates: start: 20050714
  16. OMEPRAZOLE [Concomitant]
     Indication: GASTROOESOPHAGEAL REFLUX DISEASE
     Route: 048
     Dates: start: 20040327
  17. PAROXETINE HCL [Concomitant]
     Indication: DEPRESSION
     Route: 048
     Dates: start: 20040318
  18. TERIPARATIDE [Concomitant]
     Indication: OSTEOPOROSIS
     Route: 058
     Dates: start: 20070102
  19. LEVOTHYROXINE SODIUM [Concomitant]
     Indication: HYPOTHYROIDISM
     Route: 048
     Dates: start: 20070524
  20. CEPHALEXIN [Concomitant]
     Indication: URINARY TRACT INFECTION
     Route: 048
     Dates: start: 20070918, end: 20070920
  21. LEVOFLOXACIN [Concomitant]
     Indication: URINARY TRACT INFECTION
     Route: 048
     Dates: start: 20070921, end: 20070925

REACTIONS (1)
  - NODAL MARGINAL ZONE B-CELL LYMPHOMA [None]
